FAERS Safety Report 26028129 (Version 1)
Quarter: 2025Q4

REPORT INFORMATION
  Report Type: Report from Study
  Country: US (occurrence: US)
  Receive Date: 20251111
  Receipt Date: 20251111
  Transmission Date: 20260118
  Serious: Yes (Hospitalization)
  Sender: EISAI
  Company Number: US-Eisai-EC-2025-198683

PATIENT
  Age: 58 Year
  Sex: Male
  Weight: 70 kg

DRUGS (8)
  1. LENVIMA [Suspect]
     Active Substance: LENVATINIB
     Indication: Renal cell carcinoma
     Route: 048
     Dates: start: 202510, end: 202511
  2. LENVIMA [Suspect]
     Active Substance: LENVATINIB
     Dosage: UNKNOWN DOSE AND FREQUENCY (DOSE REDUCED)
     Route: 048
  3. KEYTRUDA [Concomitant]
     Active Substance: PEMBROLIZUMAB
     Indication: Product used for unknown indication
     Dosage: DOSE AND FREQUENCY UNKNOWN
  4. ONDANSETRON [Concomitant]
     Active Substance: ONDANSETRON
  5. XANAX [Concomitant]
     Active Substance: ALPRAZOLAM
  6. LOPERAMIDE [Concomitant]
     Active Substance: LOPERAMIDE
  7. ROLAIDS ULTRA STRENGTH FRUIT [Concomitant]
     Active Substance: CALCIUM CARBONATE\MAGNESIUM HYDROXIDE
  8. TUMS [Concomitant]
     Active Substance: CALCIUM CARBONATE

REACTIONS (7)
  - Nausea [Unknown]
  - Stomatitis [Unknown]
  - Decreased appetite [Unknown]
  - Product packaging difficult to open [Unknown]
  - Cough [Not Recovered/Not Resolved]
  - Gastrooesophageal reflux disease [Not Recovered/Not Resolved]
  - Nasal dryness [Not Recovered/Not Resolved]

NARRATIVE: CASE EVENT DATE: 20250101
